FAERS Safety Report 23112437 (Version 2)
Quarter: 2023Q4

REPORT INFORMATION
  Report Type: Spontaneous
  Country: US (occurrence: US)
  Receive Date: 20231027
  Receipt Date: 20231201
  Transmission Date: 20240110
  Serious: No
  Sender: FDA-Public Use
  Company Number: US-TOLMAR, INC.-23US043859

PATIENT
  Sex: Male

DRUGS (2)
  1. KETOCONAZOLE [Suspect]
     Active Substance: KETOCONAZOLE
     Indication: Seborrhoea
     Dosage: UNK UNK, QD
     Dates: start: 202308
  2. FINASTERIDE [Suspect]
     Active Substance: FINASTERIDE
     Indication: Seborrhoea
     Dosage: UNK
     Dates: start: 202308

REACTIONS (2)
  - Libido decreased [Unknown]
  - Off label use [Unknown]

NARRATIVE: CASE EVENT DATE: 20230801
